FAERS Safety Report 21688821 (Version 1)
Quarter: 2022Q4

REPORT INFORMATION
  Report Type: Spontaneous
  Country: US (occurrence: None)
  Receive Date: 20221205
  Receipt Date: 20221205
  Transmission Date: 20230113
  Serious: No
  Sender: FDA-Public Use
  Company Number: None

PATIENT
  Age: 68 Year
  Sex: Male
  Weight: 93.7 kg

DRUGS (2)
  1. LEUCOVORIN [Suspect]
     Active Substance: LEUCOVORIN
     Indication: Colon cancer metastatic
     Dosage: FREQUENCY : EVERY OTHER WEEK;?
     Route: 041
     Dates: start: 20220919, end: 20221205
  2. PANITUMUMAB [Concomitant]
     Active Substance: PANITUMUMAB
     Dates: start: 20220919

REACTIONS (9)
  - Vomiting [None]
  - Sinus disorder [None]
  - Back pain [None]
  - Nasal congestion [None]
  - Flushing [None]
  - Blood pressure increased [None]
  - Nausea [None]
  - Headache [None]
  - Infusion related reaction [None]

NARRATIVE: CASE EVENT DATE: 20221205
